FAERS Safety Report 5529568-9 (Version None)
Quarter: 2007Q4

REPORT INFORMATION
  Report Type: 
  Country: None (occurrence: None)
  Receive Date: 20071129
  Receipt Date: 20071116
  Transmission Date: 20080405
  Serious: No
  Sender: FDA-Public Use
  Company Number: US-ELI_LILLY_AND_COMPANY-US200711004848

PATIENT
  Age: 68 Year
  Sex: Female

DRUGS (1)
  1. CYMBALTA [Suspect]
     Dosage: 30 MG, UNK

REACTIONS (1)
  - ALANINE AMINOTRANSFERASE INCREASED [None]
